FAERS Safety Report 17101411 (Version 1)
Quarter: 2019Q4

REPORT INFORMATION
  Report Type: Spontaneous
  Country: PT (occurrence: PT)
  Receive Date: 20191202
  Receipt Date: 20191202
  Transmission Date: 20200122
  Serious: Yes (Other)
  Sender: FDA-Public Use
  Company Number: PT-SA-2019SA327529

PATIENT
  Age: 80 Year
  Sex: Female

DRUGS (1)
  1. ENOXAPARIN SODIUM. [Suspect]
     Active Substance: ENOXAPARIN SODIUM
     Dosage: 1 MG/KG, UNK
     Route: 023

REACTIONS (5)
  - Medication error [Unknown]
  - Cystitis [Unknown]
  - Haematuria [Unknown]
  - Shock haemorrhagic [Unknown]
  - Cholestasis [Unknown]
